FAERS Safety Report 15477124 (Version 2)
Quarter: 2018Q4

REPORT INFORMATION
  Report Type: Spontaneous
  Country: US (occurrence: US)
  Receive Date: 20181009
  Receipt Date: 20181115
  Transmission Date: 20190205
  Serious: No
  Sender: FDA-Public Use
  Company Number: US-PFIZER INC-2018399660

PATIENT
  Age: 67 Year
  Sex: Male

DRUGS (1)
  1. EUCRISA [Suspect]
     Active Substance: CRISABOROLE
     Dosage: UNK, 2X/DAY (APPLY A THIN LAYER TOPICALLY TO AFFECTED AREAS 2 TIMES A DAY)
     Route: 061

REACTIONS (3)
  - Application site pain [Unknown]
  - Immune system disorder [Unknown]
  - Application site irritation [Unknown]
